FAERS Safety Report 21781494 (Version 1)
Quarter: 2022Q4

REPORT INFORMATION
  Report Type: Report from Study
  Country: US (occurrence: US)
  Receive Date: 20221227
  Receipt Date: 20221227
  Transmission Date: 20230113
  Serious: No
  Sender: FDA-Public Use
  Company Number: US-ABBVIE-4209842

PATIENT
  Age: 39 Year
  Sex: Female

DRUGS (1)
  1. HUMIRA [Suspect]
     Active Substance: ADALIMUMAB
     Indication: Hidradenitis
     Dosage: CITRATE FREE?STRENGTH: 40 MG
     Route: 058

REACTIONS (4)
  - Menstruation irregular [Recovered/Resolved]
  - Acne [Recovering/Resolving]
  - Erythema [Recovering/Resolving]
  - Skin mass [Unknown]

NARRATIVE: CASE EVENT DATE: 20221101
